FAERS Safety Report 5981791-5 (Version None)
Quarter: 2008Q4

REPORT INFORMATION
  Report Type: 
  Country: None (occurrence: None)
  Receive Date: 20081205
  Receipt Date: 20080325
  Transmission Date: 20090506
  Serious: Yes (Other)
  Sender: FDA-Public Use
  Company Number: US-BAXTER-2008BH002783

PATIENT

DRUGS (2)
  1. GAMMAGARD [Suspect]
     Indication: BRUTON'S AGAMMAGLOBULINAEMIA
     Dosage: DOSE UNIT:UNKNOWN
     Route: 065
  2. GAMMAGARD S/D [Suspect]
     Indication: BRUTON'S AGAMMAGLOBULINAEMIA
     Dosage: DOSE UNIT:UNKNOWN
     Route: 065

REACTIONS (1)
  - VIRAL HEPATITIS CARRIER [None]
